FAERS Safety Report 8798028 (Version 2)
Quarter: 2015Q1

REPORT INFORMATION
  Report Type: Report from Study
  Country: US (occurrence: US)
  Receive Date: 20120919
  Receipt Date: 20150319
  Transmission Date: 20150721
  Serious: Yes (Death, Other)
  Sender: FDA-Public Use
  Company Number: US-ROCHE-1123406

PATIENT
  Sex: Female
  Weight: 64.01 kg

DRUGS (22)
  1. XELODA [Suspect]
     Active Substance: CAPECITABINE
     Indication: BONE CANCER
  2. OXYCONTIN [Concomitant]
     Active Substance: OXYCODONE HYDROCHLORIDE
     Route: 048
  3. COMPAZINE [Concomitant]
     Active Substance: PROCHLORPERAZINE MALEATE
     Dosage: 1 TAB EVERY SIX HR.
     Route: 048
  4. TYLENOL [Concomitant]
     Active Substance: ACETAMINOPHEN
     Route: 048
  5. METOCLOPRAMIDE. [Concomitant]
     Active Substance: METOCLOPRAMIDE
     Route: 048
  6. DIOVAN HCT [Concomitant]
     Active Substance: HYDROCHLOROTHIAZIDE\VALSARTAN
     Dosage: 160-12.5 MG
     Route: 048
  7. EMLA [Concomitant]
     Active Substance: LIDOCAINE\PRILOCAINE
     Dosage: 2.5-2.5 % TOPICALLY.
     Route: 061
  8. AVASTIN [Suspect]
     Active Substance: BEVACIZUMAB
     Indication: BONE CANCER
     Route: 042
     Dates: start: 20090604
  9. KYTRIL [Concomitant]
     Active Substance: GRANISETRON HYDROCHLORIDE
     Route: 048
  10. ZOFRAN [Concomitant]
     Active Substance: ONDANSETRON HYDROCHLORIDE
     Dosage: 1 TAB EVERY 12 HR
     Route: 048
  11. NEULASTA [Concomitant]
     Active Substance: PEGFILGRASTIM
     Route: 065
  12. TAXOL [Concomitant]
     Active Substance: PACLITAXEL
  13. LOMOTIL (UNITED STATES) [Concomitant]
     Dosage: 2.5 TO 0.025 MG DAILY
     Route: 048
  14. LOMOTIL (UNITED STATES) [Concomitant]
     Route: 048
  15. SCOPOLAMINE [Concomitant]
     Active Substance: SCOPOLAMINE
     Dosage: APPLY 1 PATCH TO SKIN
     Route: 062
  16. AVASTIN [Suspect]
     Active Substance: BEVACIZUMAB
     Indication: BREAST CANCER
     Route: 042
     Dates: start: 20090119
  17. BENADRYL [Concomitant]
     Active Substance: DIPHENHYDRAMINE HYDROCHLORIDE
     Route: 048
  18. CIPRO [Concomitant]
     Active Substance: CIPROFLOXACIN HYDROCHLORIDE
     Route: 048
  19. ZOMETA [Concomitant]
     Active Substance: ZOLEDRONIC ACID
  20. XELODA [Suspect]
     Active Substance: CAPECITABINE
     Indication: BREAST CANCER
     Dosage: 3 TAB AM AND 3 TAB PM
     Route: 048
  21. METRONIDAZOLE. [Concomitant]
     Active Substance: METRONIDAZOLE
     Route: 061
  22. LORTAB (UNITED STATES) [Concomitant]
     Dosage: 5-500 MG ORAL TAB.1 TAB EVERY 6 HR.
     Route: 048

REACTIONS (18)
  - Balance disorder [Unknown]
  - Back pain [Unknown]
  - Pain in extremity [Unknown]
  - Oedema peripheral [Unknown]
  - Disease progression [Unknown]
  - Gait disturbance [Unknown]
  - Muscular weakness [Unknown]
  - Pancytopenia [Unknown]
  - Abdominal pain [Unknown]
  - Constipation [Unknown]
  - Decreased appetite [Unknown]
  - Hyporeflexia [Unknown]
  - Death [Fatal]
  - Dyspnoea [Unknown]
  - Asthenia [Unknown]
  - Abdominal tenderness [Unknown]
  - Palmar-plantar erythrodysaesthesia syndrome [Unknown]
  - Arthritis [Unknown]
